FAERS Safety Report 15656083 (Version 1)
Quarter: 2018Q4

REPORT INFORMATION
  Report Type: Spontaneous
  Country: US (occurrence: US)
  Receive Date: 20181126
  Receipt Date: 20181126
  Transmission Date: 20190205
  Serious: Yes (Disabling)
  Sender: FDA-Public Use
  Company Number: US-SAKK-2018SA313678AA

PATIENT
  Sex: Female

DRUGS (4)
  1. TOUJEO [Suspect]
     Active Substance: INSULIN GLARGINE
     Indication: TYPE 2 DIABETES MELLITUS
     Dosage: 130 U, QD
     Route: 065
     Dates: start: 201802, end: 201808
  2. NOVOLOG [Concomitant]
     Active Substance: INSULIN ASPART
  3. INDAPAMIDE. [Concomitant]
     Active Substance: INDAPAMIDE
     Indication: BLOOD PRESSURE MANAGEMENT
  4. LOSARTAN. [Concomitant]
     Active Substance: LOSARTAN
     Indication: BLOOD PRESSURE MANAGEMENT

REACTIONS (5)
  - Heart rate increased [Recovering/Resolving]
  - Walking disability [Recovering/Resolving]
  - Somnolence [Recovering/Resolving]
  - Swelling [Recovering/Resolving]
  - Back pain [Recovering/Resolving]
